FAERS Safety Report 5430366-5 (Version None)
Quarter: 2007Q3

REPORT INFORMATION
  Report Type: 
  Country: None (occurrence: None)
  Receive Date: 20070828
  Receipt Date: 20070813
  Transmission Date: 20080115
  Serious: Yes (Other)
  Sender: FDA-Public Use
  Company Number: 2007RR-09316

PATIENT
  Age: 68 Year
  Sex: Male

DRUGS (5)
  1. CLARITHROMYCIN [Suspect]
     Dosage: G, ORAL
     Route: 048
  2. GLYCERYL TRINITRATE (GLYCERYL TRINITRATE) [Concomitant]
  3. ISOSORBIDE DINITRATE [Concomitant]
  4. CHOLESTYRAMINE (CHOLESTYRAMINE) [Concomitant]
  5. NADOLOL [Concomitant]

REACTIONS (4)
  - AGRANULOCYTOSIS [None]
  - COUGH [None]
  - DIARRHOEA [None]
  - PYREXIA [None]
